FAERS Safety Report 9163065 (Version 1)
Quarter: 2013Q1

REPORT INFORMATION
  Report Type: Spontaneous
  Country: GB (occurrence: None)
  Receive Date: 20130227
  Receipt Date: 20130227
  Transmission Date: 20140127
  Serious: Yes (Other)
  Sender: FDA-Public Use
  Company Number: AUR-APL-2013-01533

PATIENT
  Sex: Female
  Weight: 62.1 kg

DRUGS (14)
  1. FLUOXETINE (FLUOXETINE) [Suspect]
     Indication: DEPRESSION
     Route: 048
  2. ONDANSETRON (ONDANSETRON) [Suspect]
     Indication: ANTIEMETIC SUPPORTIVE CARE
     Route: 042
     Dates: start: 20121101, end: 20121101
  3. ATORVASTATIN(ATORVASTATIN) [Concomitant]
  4. ATRACURIUM (ATRACURIUM) [Concomitant]
  5. DEXAMETHASONE (DEXAMETHASONE) [Concomitant]
  6. EPHEDRINE (EPHEDRINE) [Concomitant]
  7. FENTANYL (FENTANYL) [Concomitant]
  8. GENTAMICIN (GENTAMICIN) [Concomitant]
  9. MANEVAC (MANEVAC) [Concomitant]
  10. METRONIDAZOLE (METRONIDAZOLE) [Concomitant]
  11. NEOSTIGMINE (NEOSTIGMINE) [Concomitant]
  12. PROPOFOL (PROPOFOL) [Concomitant]
  13. RANITIDINE (RANITIDINE) [Concomitant]
  14. SEVOFLURANE (SEVOFLURANE) [Concomitant]

REACTIONS (7)
  - Procedural hypertension [None]
  - Tachycardia [None]
  - Post procedural complication [None]
  - Pyrexia [None]
  - Tremor [None]
  - Coma scale abnormal [None]
  - Serotonin syndrome [None]
